FAERS Safety Report 9553589 (Version 2)
Quarter: 2013Q3

REPORT INFORMATION
  Report Type: Spontaneous
  Country: US (occurrence: US)
  Receive Date: 20130925
  Receipt Date: 20130925
  Transmission Date: 20140515
  Serious: Yes (Hospitalization, Other)
  Sender: FDA-Public Use
  Company Number: US-PFIZER INC-2013270327

PATIENT
  Sex: Female

DRUGS (4)
  1. PROCARDIA XL [Suspect]
     Dosage: 90 MG, UNK
  2. PROCARDIA XL [Interacting]
     Dosage: 30 MG, UNK
  3. ACCUPRIL [Interacting]
     Dosage: UNK
  4. ACCUPRIL [Interacting]
     Dosage: UNK

REACTIONS (5)
  - Lethargy [Unknown]
  - Malaise [Unknown]
  - Blood glucose increased [Unknown]
  - Heart rate abnormal [Unknown]
  - Drug interaction [Unknown]
